FAERS Safety Report 8174508-X (Version None)
Quarter: 2012Q1

REPORT INFORMATION
  Report Type: 
  Country: None (occurrence: None)
  Receive Date: 20120229
  Receipt Date: 20120221
  Transmission Date: 20120608
  Serious: Yes (Other)
  Sender: FDA-Public Use
  Company Number: NZ-ABBOTT-12P-118-0901755-00

PATIENT
  Sex: Male

DRUGS (8)
  1. METFORMIN HCL [Concomitant]
     Indication: DIABETES MELLITUS
  2. PREDNISONE [Concomitant]
     Indication: PRODUCT USED FOR UNKNOWN INDICATION
  3. HUMIRA [Suspect]
     Indication: RHEUMATOID ARTHRITIS
     Route: 058
     Dates: start: 20091201, end: 20111201
  4. METHOTREXATE [Concomitant]
     Indication: PRODUCT USED FOR UNKNOWN INDICATION
  5. INSULIN [Concomitant]
     Indication: DIABETES MELLITUS
  6. CILAZAPRIL [Concomitant]
     Indication: PRODUCT USED FOR UNKNOWN INDICATION
  7. LIPITOR [Concomitant]
     Indication: PRODUCT USED FOR UNKNOWN INDICATION
  8. AZULFIDINE [Concomitant]
     Indication: PRODUCT USED FOR UNKNOWN INDICATION

REACTIONS (11)
  - WEIGHT BEARING DIFFICULTY [None]
  - INFLAMMATORY MARKER INCREASED [None]
  - ARTHRALGIA [None]
  - OSTEONECROSIS [None]
  - ARTHRITIS BACTERIAL [None]
  - PYREXIA [None]
  - ARTHROPATHY [None]
  - SEPSIS [None]
  - LISTERIOSIS [None]
  - NIGHT SWEATS [None]
  - TENOSYNOVITIS [None]
